FAERS Safety Report 25013642 (Version 2)
Quarter: 2025Q1

REPORT INFORMATION
  Report Type: Spontaneous
  Country: US (occurrence: US)
  Receive Date: 20250226
  Receipt Date: 20250228
  Transmission Date: 20250408
  Serious: Yes (Hospitalization, Other)
  Sender: PFIZER
  Company Number: US-PFIZER INC-202500042619

PATIENT
  Age: 74 Year
  Sex: Female

DRUGS (7)
  1. TUKYSA [Suspect]
     Active Substance: TUCATINIB
     Indication: Breast cancer
     Dates: start: 20210726
  2. TUKYSA [Suspect]
     Active Substance: TUCATINIB
     Dosage: 300 MG, 2X/DAY
     Route: 048
     Dates: start: 20240129
  3. TUKYSA [Suspect]
     Active Substance: TUCATINIB
     Dates: start: 20240311
  4. TUKYSA [Suspect]
     Active Substance: TUCATINIB
     Dosage: 150 MG ORALLY BID (TWICE A DAY)
     Route: 048
  5. HERCEPTIN [Suspect]
     Active Substance: TRASTUZUMAB
     Indication: Breast cancer
     Dates: start: 20210726
  6. HERCEPTIN [Suspect]
     Active Substance: TRASTUZUMAB
     Dates: start: 20240129
  7. HERCEPTIN [Suspect]
     Active Substance: TRASTUZUMAB
     Dates: start: 20240311

REACTIONS (8)
  - Dyspnoea [Unknown]
  - Pulmonary embolism [Unknown]
  - Pneumonia [Unknown]
  - Brain oedema [Unknown]
  - Neoplasm progression [Unknown]
  - Gallbladder disorder [Unknown]
  - Abdominal discomfort [Unknown]
  - Atelectasis [Unknown]

NARRATIVE: CASE EVENT DATE: 20240313
